FAERS Safety Report 4270801-1 (Version None)
Quarter: 2004Q1

REPORT INFORMATION
  Report Type: 
  Country: None (occurrence: None)
  Receive Date: 20040113
  Receipt Date: 20040105
  Transmission Date: 20041129
  Serious: Yes (Other)
  Sender: FDA-Public Use
  Company Number: 2004JP000019

PATIENT
  Age: 10 Year
  Sex: Female

DRUGS (1)
  1. PROGRAF [Suspect]
     Indication: LIVER TRANSPLANT
     Dosage: ORAL
     Route: 048

REACTIONS (4)
  - ACUTE LYMPHOCYTIC LEUKAEMIA [None]
  - HEPATIC FUNCTION ABNORMAL [None]
  - LEUKAEMIC INFILTRATION HEPATIC [None]
  - PLATELET COUNT DECREASED [None]
